FAERS Safety Report 23573366 (Version 1)
Quarter: 2024Q1

REPORT INFORMATION
  Report Type: Report from Study
  Country: US (occurrence: US)
  Receive Date: 20240228
  Receipt Date: 20240228
  Transmission Date: 20240409
  Serious: Yes (Hospitalization)
  Sender: FDA-Public Use
  Company Number: US-TAKEDA-2022TUS003844

PATIENT
  Age: 58 Year
  Sex: Female

DRUGS (2)
  1. VEDOLIZUMAB [Suspect]
     Active Substance: VEDOLIZUMAB
     Indication: Crohn^s disease
     Dosage: 300 MILLIGRAM
     Route: 042
     Dates: start: 20211230
  2. VEDOLIZUMAB [Suspect]
     Active Substance: VEDOLIZUMAB
     Indication: Colitis ulcerative

REACTIONS (7)
  - Surgery [Unknown]
  - Arthralgia [Not Recovered/Not Resolved]
  - Breakthrough COVID-19 [Not Recovered/Not Resolved]
  - Catheter site injury [Recovered/Resolved]
  - Infusion site bruising [Recovering/Resolving]
  - Infusion site swelling [Recovered/Resolved with Sequelae]
  - Infusion site pain [Recovered/Resolved]

NARRATIVE: CASE EVENT DATE: 20211230
